FAERS Safety Report 4314586-9 (Version None)
Quarter: 2004Q1

REPORT INFORMATION
  Report Type: 
  Country: None (occurrence: None)
  Receive Date: 20040308
  Receipt Date: 20040223
  Transmission Date: 20041129
  Serious: Yes (Life-Threatening)
  Sender: FDA-Public Use
  Company Number: FR-JNJFOC-20040205098

PATIENT
  Age: 91 Year
  Sex: Female
  Weight: 43 kg

DRUGS (9)
  1. DURAGESIC [Suspect]
     Indication: POST PROCEDURAL PAIN
     Dosage: 25 UG/HR, 1 IN 3 DAY, TRANSDERMAL
     Route: 062
     Dates: start: 20040127, end: 20040128
  2. MORPHINE [Suspect]
     Indication: DRUG USE FOR UNKNOWN INDICATION
     Dosage: 5 MG, 1 IN 1 DAY, ORAL
     Route: 048
     Dates: end: 20040128
  3. DI-ANTALVIC (APOREX) TABLETS [Concomitant]
  4. ATHYMIL (MIANSERIN HYDROCHLORIDE) UNSPECIFIED [Concomitant]
  5. AMLOR (AMLODIPINE BESILATE) UNSPECIFIED [Concomitant]
  6. CORVASAL (MOLSIDOMINE) UNSPECIFIED [Concomitant]
  7. NITRIDERM TTS (GLYCERYL TRINITRATE) PATCH [Concomitant]
  8. LEVOTHYROX (LEVOTHYROXINE SODIUM) UNSPECIFIED [Concomitant]
  9. L-THYROXINE (LEVOTHYROXINE SODIUM) UNSPECIFIED [Concomitant]

REACTIONS (4)
  - BRADYPNOEA [None]
  - DEPRESSED LEVEL OF CONSCIOUSNESS [None]
  - MIOSIS [None]
  - OVERDOSE [None]
